FAERS Safety Report 25641729 (Version 1)
Quarter: 2025Q3

REPORT INFORMATION
  Report Type: Spontaneous
  Country: US (occurrence: US)
  Receive Date: 20250804
  Receipt Date: 20250804
  Transmission Date: 20251021
  Serious: No
  Sender: AMPHASTAR
  Company Number: US-Amphastar Pharmaceuticals, Inc.-2181826

PATIENT

DRUGS (1)
  1. ISOPROTERENOL HYDROCHLORIDE [Suspect]
     Active Substance: ISOPROTERENOL HYDROCHLORIDE
     Dates: start: 20250411, end: 20250411

REACTIONS (1)
  - Drug ineffective [Unknown]

NARRATIVE: CASE EVENT DATE: 20250411
